FAERS Safety Report 8218466-8 (Version None)
Quarter: 2012Q1

REPORT INFORMATION
  Report Type: 
  Country: None (occurrence: None)
  Receive Date: 20120319
  Receipt Date: 20120306
  Transmission Date: 20120608
  Serious: Yes (Hospitalization)
  Sender: FDA-Public Use
  Company Number: JP-ELI_LILLY_AND_COMPANY-JP201203002867

PATIENT
  Age: 76 Year
  Sex: Female

DRUGS (2)
  1. HUMIRA [Concomitant]
     Indication: RHEUMATOID ARTHRITIS
     Dosage: UNK
     Route: 065
  2. FORTEO [Suspect]
     Dosage: UNK
     Route: 058
     Dates: start: 20111215, end: 20120201

REACTIONS (2)
  - DYSLALIA [None]
  - DECREASED APPETITE [None]
